FAERS Safety Report 10067202 (Version 1)
Quarter: 2014Q2

REPORT INFORMATION
  Report Type: Spontaneous
  Country: US (occurrence: None)
  Receive Date: 20140408
  Receipt Date: 20140408
  Transmission Date: 20141212
  Serious: Yes (Other)
  Sender: FDA-Public Use
  Company Number: None

PATIENT
  Age: 64 Year
  Sex: Female
  Weight: 49.9 kg

DRUGS (3)
  1. NAPROXEN [Suspect]
     Indication: FIBROMYALGIA
     Dosage: 1 TAB PER DAY ONCE DAILY
     Route: 048
     Dates: start: 20140305, end: 20140307
  2. NAPROXEN [Suspect]
     Indication: PAIN IN EXTREMITY
     Dosage: 1 TAB PER DAY ONCE DAILY
     Route: 048
     Dates: start: 20140305, end: 20140307
  3. NAPROXEN [Suspect]
     Indication: GROIN PAIN
     Dosage: 1 TAB PER DAY ONCE DAILY
     Route: 048
     Dates: start: 20140305, end: 20140307

REACTIONS (12)
  - Affective disorder [None]
  - Depression [None]
  - Anxiety [None]
  - Nightmare [None]
  - Hyperoxaluria [None]
  - Hyperaesthesia [None]
  - Pain of skin [None]
  - Dizziness [None]
  - Depressed level of consciousness [None]
  - Impaired driving ability [None]
  - Peripheral swelling [None]
  - Peripheral swelling [None]
